FAERS Safety Report 25235591 (Version 2)
Quarter: 2025Q2

REPORT INFORMATION
  Report Type: Report from Study
  Country: US (occurrence: US)
  Receive Date: 20250424
  Receipt Date: 20250430
  Transmission Date: 20250717
  Serious: Yes (Other)
  Sender: UCB
  Company Number: US-UCBSA-2025023989

PATIENT
  Age: 31 Year
  Sex: Female
  Weight: 75 kg

DRUGS (1)
  1. FINTEPLA [Suspect]
     Active Substance: FENFLURAMINE
     Indication: Seizure
     Dosage: 5.9 MILLILITER, 2X/DAY (BID)
     Dates: start: 202411

REACTIONS (1)
  - Mitral valve incompetence [Not Recovered/Not Resolved]

NARRATIVE: CASE EVENT DATE: 20250414
